FAERS Safety Report 19683994 (Version 3)
Quarter: 2021Q3

REPORT INFORMATION
  Report Type: Spontaneous
  Country: US (occurrence: US)
  Receive Date: 20210811
  Receipt Date: 20210929
  Transmission Date: 20211014
  Serious: Yes (Other)
  Sender: FDA-Public Use
  Company Number: US-MELINTA THERAPEUTICS, LLC-US-MLNT-21-00083

PATIENT
  Age: 66 Year
  Sex: Male
  Weight: 64 kg

DRUGS (9)
  1. ISOSORBIDE DINITRATE. [Concomitant]
     Active Substance: ISOSORBIDE DINITRATE
     Indication: PRODUCT USED FOR UNKNOWN INDICATION
     Dates: start: 20190813, end: 20190820
  2. COLISTIMETHATE [Concomitant]
     Active Substance: COLISTIMETHATE SODIUM
     Indication: ENTEROBACTER INFECTION
     Dates: start: 20190815, end: 20190819
  3. CARVEDILOL. [Concomitant]
     Active Substance: CARVEDILOL
     Indication: PRODUCT USED FOR UNKNOWN INDICATION
     Dates: start: 20190814, end: 20190819
  4. MINOCYCLINE [Suspect]
     Active Substance: MINOCYCLINE HYDROCHLORIDE
     Indication: ENTEROBACTER INFECTION
     Dates: start: 20190810, end: 20190819
  5. HYDRALAZINE [Concomitant]
     Active Substance: HYDRALAZINE HYDROCHLORIDE
     Indication: HYPERTENSION
     Dates: start: 20190813, end: 20190820
  6. LISINOPRIL. [Concomitant]
     Active Substance: LISINOPRIL
     Indication: HYPERTENSION
     Dates: start: 20190813, end: 20190819
  7. VABOMERE [Suspect]
     Active Substance: MEROPENEM\VABORBACTAM
     Indication: ENTEROBACTER INFECTION
     Dosage: 12 GM PER 24 HOURS
     Route: 042
     Dates: start: 20190810, end: 20190815
  8. POLYMYXIN B. [Concomitant]
     Active Substance: POLYMYXIN B
     Indication: ENTEROBACTER INFECTION
     Dates: start: 20190810, end: 20190819
  9. AMLODIPINE [Concomitant]
     Active Substance: AMLODIPINE BESYLATE
     Indication: HYPERTENSION
     Dates: start: 20190813, end: 20190819

REACTIONS (2)
  - Off label use [Unknown]
  - Acute kidney injury [Unknown]
